FAERS Safety Report 22226325 (Version 2)
Quarter: 2023Q2

REPORT INFORMATION
  Report Type: Report from Study
  Country: CA (occurrence: CA)
  Receive Date: 20230419
  Receipt Date: 20230419
  Transmission Date: 20230721
  Serious: Yes (Hospitalization)
  Sender: FDA-Public Use
  Company Number: CA-ABBVIE-4726501

PATIENT
  Age: 28 Year
  Sex: Male

DRUGS (1)
  1. SKYRIZI [Suspect]
     Active Substance: RISANKIZUMAB-RZAA
     Indication: Crohn^s disease
     Route: 058
     Dates: start: 20230112

REACTIONS (4)
  - Intestinal obstruction [Recovering/Resolving]
  - Intestinal stenosis [Unknown]
  - Crohn^s disease [Unknown]
  - Device issue [Unknown]

NARRATIVE: CASE EVENT DATE: 20230401
